FAERS Safety Report 10243179 (Version 1)
Quarter: 2014Q2

REPORT INFORMATION
  Report Type: Spontaneous
  Country: US (occurrence: US)
  Receive Date: 20140618
  Receipt Date: 20140618
  Transmission Date: 20141212
  Serious: Yes (Other)
  Sender: FDA-Public Use
  Company Number: US-JNJFOC-20140604396

PATIENT
  Sex: 0

DRUGS (5)
  1. DOXORUBICIN [Suspect]
     Indication: BREAST CANCER
     Route: 042
  2. PACLITAXEL [Suspect]
     Indication: BREAST CANCER
     Dosage: WEEKLY X 12
     Route: 065
  3. CYCLOPHOSPHAMIDE [Suspect]
     Indication: BREAST CANCER
     Dosage: ONCE EVERY 2 WEEKS X 4 DOSE-DENSE ANTHRACYCLINES (DDAC
     Route: 065
  4. CARBOPLATIN [Suspect]
     Indication: BREAST CANCER
     Dosage: ONCE EVERY 3 WEEKS X 4, AUC 6 DURING PACLITAXEL
     Route: 065
  5. BEVACIZUMAB [Suspect]
     Indication: BREAST CANCER
     Dosage: ONCE EVERY 2 WEEKS X 9
     Route: 065

REACTIONS (4)
  - Hypertension [Unknown]
  - Neutropenia [Unknown]
  - Thrombocytopenia [Unknown]
  - Febrile neutropenia [Unknown]
